FAERS Safety Report 6897058-7 (Version None)
Quarter: 2010Q3

REPORT INFORMATION
  Report Type: 
  Country: None (occurrence: None)
  Receive Date: 20100729
  Receipt Date: 20100720
  Transmission Date: 20110219
  Serious: Yes (Other)
  Sender: FDA-Public Use
  Company Number: 2010SP039783

PATIENT
  Age: 60 Year
  Sex: Female

DRUGS (1)
  1. DIPROSPAN (BETAMETHASONE SODIUM PHOSPHATE/DIPROPIONATE) (BETAMETHASONE [Suspect]
     Indication: MUSCULOSKELETAL PAIN
     Dosage: ONCE; IM
     Route: 030
     Dates: start: 20100511, end: 20100511

REACTIONS (4)
  - ERYTHEMA [None]
  - FEELING ABNORMAL [None]
  - HEART RATE INCREASED [None]
  - SWELLING FACE [None]
